FAERS Safety Report 21764740 (Version 2)
Quarter: 2022Q4

REPORT INFORMATION
  Report Type: Spontaneous
  Country: TR (occurrence: TR)
  Receive Date: 20221222
  Receipt Date: 20221226
  Transmission Date: 20230113
  Serious: Yes (Other)
  Sender: FDA-Public Use
  Company Number: TR-002147023-NVSC2022TR292332

PATIENT
  Age: 67 Year
  Sex: Male

DRUGS (1)
  1. METFORMIN HYDROCHLORIDE [Suspect]
     Active Substance: METFORMIN HYDROCHLORIDE
     Indication: Insulin resistance
     Dosage: 1700 MG, BID, (ON A FULL STOMACH, 1 TABLET MORNING AND 1 TABLET EVENING AFTER MEAL)
     Route: 065

REACTIONS (7)
  - Dizziness [Recovered/Resolved]
  - Tremor [Recovered/Resolved]
  - Hunger [Recovered/Resolved]
  - Weight increased [Unknown]
  - Fall [Recovered/Resolved]
  - Dizziness postural [Recovered/Resolved]
  - Nausea [Recovered/Resolved]
